FAERS Safety Report 17745058 (Version 1)
Quarter: 2020Q2

REPORT INFORMATION
  Report Type: Spontaneous
  Country: DE (occurrence: DE)
  Receive Date: 20200504
  Receipt Date: 20200504
  Transmission Date: 20200714
  Serious: Yes (Death, Life-Threatening, Hospitalization, Other)
  Sender: FDA-Public Use
  Company Number: DE-US-PROVELL PHARMACEUTICALS LLC-E2B_90076319

PATIENT
  Sex: Female
  Weight: 52 kg

DRUGS (29)
  1. PREDNISOLONE. [Suspect]
     Active Substance: PREDNISOLONE
     Indication: SYSTEMIC LUPUS ERYTHEMATOSUS
     Dosage: 5 MG, QD
     Dates: start: 1988
  2. DULOXETINE. [Concomitant]
     Active Substance: DULOXETINE
     Indication: PRODUCT USED FOR UNKNOWN INDICATION
     Dosage: UNK UNK, QD 30 (1-0-0)
  3. BENLYSTA [Suspect]
     Active Substance: BELIMUMAB
     Dosage: 10 MG/KG, WE
     Route: 058
     Dates: start: 201711, end: 201812
  4. L-THYROX [Concomitant]
     Active Substance: LEVOTHYROXINE SODIUM
     Indication: PRODUCT USED FOR UNKNOWN INDICATION
     Dosage: UNK UNK, QD 50 (1-0-0)
  5. VALSARTAN. [Suspect]
     Active Substance: VALSARTAN
     Indication: SYSTEMIC LUPUS ERYTHEMATOSUS
     Dosage: UNK UNK, BID 160 (1-0-1)
  6. AZATHIOPRINE. [Suspect]
     Active Substance: AZATHIOPRINE
     Indication: WHITE BLOOD CELL COUNT DECREASED
     Dosage: UNKNOWN DOSAGE
     Dates: start: 1997, end: 2008
  7. QUENSYL [Concomitant]
     Active Substance: HYDROXYCHLOROQUINE
     Dosage: 200 MG, QD (0-0-1)
  8. BAYOTENSIN [Concomitant]
     Active Substance: NITRENDIPINE
     Indication: PRODUCT USED FOR UNKNOWN INDICATION
     Dosage: UNKNOWN
  9. MOLSIDOMIN [Suspect]
     Active Substance: MOLSIDOMINE
     Indication: SYSTEMIC LUPUS ERYTHEMATOSUS
     Dosage: QD 8 RET (0-0-1)
  10. PENTACARINAT [Suspect]
     Active Substance: PENTAMIDINE ISETHIONATE
     Indication: SYSTEMIC LUPUS ERYTHEMATOSUS
     Route: 055
  11. MORPHINE [Concomitant]
     Active Substance: MORPHINE
     Indication: PRODUCT USED FOR UNKNOWN INDICATION
     Dosage: UNK UNK, BID 30 RET (1-0-1)
  12. AZATHIOPRINE. [Suspect]
     Active Substance: AZATHIOPRINE
     Indication: LYMPHOPENIA
     Dates: start: 201906, end: 201907
  13. SEVREDOL [Suspect]
     Active Substance: MORPHINE
     Indication: SYSTEMIC LUPUS ERYTHEMATOSUS
     Dosage: UNK, 20 TO S5X/D
  14. ELIQUIS [Suspect]
     Active Substance: APIXABAN
     Indication: SYSTEMIC LUPUS ERYTHEMATOSUS
  15. QUENSYL [Concomitant]
     Active Substance: HYDROXYCHLOROQUINE
     Indication: PRODUCT USED FOR UNKNOWN INDICATION
     Dates: start: 1994, end: 1997
  16. ANORO [Concomitant]
     Active Substance: UMECLIDINIUM BROMIDE\VILANTEROL TRIFENATATE
     Indication: PRODUCT USED FOR UNKNOWN INDICATION
     Dosage: UNK, 55/221 PUSH
     Route: 055
  17. EZETROL [Concomitant]
     Active Substance: EZETIMIBE
     Indication: PRODUCT USED FOR UNKNOWN INDICATION
     Dosage: UNK UNK, QD 10 (0-0-1)
  18. LEVOTHYROXINE. [Suspect]
     Active Substance: LEVOTHYROXINE
     Indication: SYSTEMIC LUPUS ERYTHEMATOSUS
  19. FLUVASTATIN [Suspect]
     Active Substance: FLUVASTATIN SODIUM
     Indication: SYSTEMIC LUPUS ERYTHEMATOSUS
     Dosage: 20 (0-0-1)
  20. ACICLOVIR [Suspect]
     Active Substance: ACYCLOVIR
     Indication: SYSTEMIC LUPUS ERYTHEMATOSUS
  21. AZATHIOPRINE. [Suspect]
     Active Substance: AZATHIOPRINE
     Indication: SYSTEMIC LUPUS ERYTHEMATOSUS
     Dates: start: 20100419, end: 201904
  22. DETRUSITOL [Suspect]
     Active Substance: TOLTERODINE TARTRATE
     Indication: SYSTEMIC LUPUS ERYTHEMATOSUS
  23. SAB SIMPLEX                        /00159501/ [Concomitant]
     Indication: PRODUCT USED FOR UNKNOWN INDICATION
     Dosage: UNK, 30GTT TO 3X/D
  24. BENLYSTA [Suspect]
     Active Substance: BELIMUMAB
     Indication: WHITE BLOOD CELL COUNT DECREASED
     Route: 058
     Dates: start: 201708, end: 201904
  25. BENLYSTA [Suspect]
     Active Substance: BELIMUMAB
     Indication: SYSTEMIC LUPUS ERYTHEMATOSUS
     Dosage: 200 MG, WE
     Route: 058
     Dates: start: 201806, end: 201807
  26. MCP                                /00041902/ [Concomitant]
     Active Substance: METOCLOPRAMIDE HYDROCHLORIDE
     Indication: PRODUCT USED FOR UNKNOWN INDICATION
     Dosage: 10 (UNITS UNSPECIFIED)
  27. DEKRISTOL [Concomitant]
     Active Substance: CHOLECALCIFEROL
     Indication: PRODUCT USED FOR UNKNOWN INDICATION
     Dosage: WE, 20000 (UNITS UNSPECIFIED)
  28. LAXATAN M [Concomitant]
     Indication: PRODUCT USED FOR UNKNOWN INDICATION
  29. ISDN [Concomitant]
     Indication: PRODUCT USED FOR UNKNOWN INDICATION
     Dosage: UNK UNK, BID 20 RET (1-1-0)

REACTIONS (30)
  - Lymphopenia [Fatal]
  - Sepsis [Fatal]
  - Urinary tract infection [Unknown]
  - Gastritis haemorrhagic [Unknown]
  - Gastrooesophageal reflux disease [Unknown]
  - Thrombocytopenia [Unknown]
  - Peritonitis [Fatal]
  - Antinuclear antibody negative [Unknown]
  - Pleuritic pain [Unknown]
  - Anxiety disorder [Unknown]
  - Fall [Unknown]
  - Off label use [Unknown]
  - Hypertension [Unknown]
  - Depression [Unknown]
  - Osteonecrosis [Unknown]
  - Coombs positive haemolytic anaemia [Unknown]
  - Herpes simplex reactivation [Unknown]
  - Pancreatitis acute [Unknown]
  - Antiphospholipid syndrome [Unknown]
  - Skin disorder [Unknown]
  - Erysipelas [Unknown]
  - Complex regional pain syndrome [Unknown]
  - Hypothyroidism [Unknown]
  - Drug hypersensitivity [Unknown]
  - Intentional product use issue [Unknown]
  - Pneumocystis jirovecii pneumonia [Fatal]
  - Leukopenia [Unknown]
  - Systemic lupus erythematosus [Unknown]
  - Hyperlipidaemia [Unknown]
  - Colitis ulcerative [Unknown]
